FAERS Safety Report 19208198 (Version 2)
Quarter: 2021Q2

REPORT INFORMATION
  Report Type: Spontaneous
  Country: FR (occurrence: FR)
  Receive Date: 20210503
  Receipt Date: 20210524
  Transmission Date: 20210717
  Serious: Yes (Other)
  Sender: FDA-Public Use
  Company Number: FR-GLAXOSMITHKLINE-FR2021EME092932

PATIENT
  Sex: Female

DRUGS (1)
  1. BENLYSTA [Suspect]
     Active Substance: BELIMUMAB
     Indication: SYSTEMIC LUPUS ERYTHEMATOSUS
     Dosage: 200 MG

REACTIONS (8)
  - Osteoarthritis [Unknown]
  - Mobility decreased [Unknown]
  - Discomfort [Unknown]
  - Pain in extremity [Not Recovered/Not Resolved]
  - Arthralgia [Unknown]
  - Back pain [Unknown]
  - Spinal compression fracture [Unknown]
  - Malaise [Unknown]
